FAERS Safety Report 13840121 (Version 1)
Quarter: 2017Q3

REPORT INFORMATION
  Report Type: Spontaneous
  Country: US (occurrence: US)
  Receive Date: 20170807
  Receipt Date: 20170807
  Transmission Date: 20171127
  Serious: No
  Sender: FDA-Public Use
  Company Number: US-HORIZON-PEN-0345-2017

PATIENT
  Age: 50 Year
  Sex: Male

DRUGS (1)
  1. PENNSAID [Suspect]
     Active Substance: DICLOFENAC SODIUM
     Indication: TENDONITIS
     Dosage: BID
     Dates: start: 20170724

REACTIONS (3)
  - Off label use [Unknown]
  - Arthralgia [Unknown]
  - Device defective [Unknown]

NARRATIVE: CASE EVENT DATE: 20170724
